FAERS Safety Report 14943784 (Version 1)
Quarter: 2018Q2

REPORT INFORMATION
  Report Type: Report from Study
  Country: ES (occurrence: ES)
  Receive Date: 20180528
  Receipt Date: 20180528
  Transmission Date: 20180711
  Serious: Yes (Hospitalization)
  Sender: FDA-Public Use
  Company Number: ES-TEVA-2018-ES-898182

PATIENT
  Age: 72 Year

DRUGS (5)
  1. METFORMINA 850 [Concomitant]
     Route: 048
     Dates: start: 20160712
  2. ATENOLOL (356A) [Concomitant]
     Active Substance: ATENOLOL
     Route: 048
     Dates: start: 20160712
  3. LISINOPRIL AND HYDROCHLOROTHIAZIDE [Suspect]
     Active Substance: HYDROCHLOROTHIAZIDE\LISINOPRIL
     Route: 065
     Dates: start: 20160712, end: 20170826
  4. AMLODIPINO 5 [Concomitant]
     Route: 048
     Dates: start: 20170826
  5. HEMOVAS 400 MG GRAGEAS , 500 COMPRIMIDOS [Concomitant]
     Route: 048
     Dates: start: 20170826

REACTIONS (3)
  - Hypokalaemia [Recovered/Resolved]
  - Rhabdomyolysis [Recovered/Resolved]
  - Acute kidney injury [Recovered/Resolved]

NARRATIVE: CASE EVENT DATE: 20170826
